FAERS Safety Report 4508980-0 (Version None)
Quarter: 2004Q4

REPORT INFORMATION
  Report Type: 
  Country: None (occurrence: None)
  Receive Date: 20041122
  Receipt Date: 20041122
  Transmission Date: 20050328
  Serious: Yes (Other)
  Sender: FDA-Public Use
  Company Number: None

PATIENT
  Age: 9 Year
  Sex: Female
  Weight: 47 kg

DRUGS (1)
  1. STRATTERA [Suspect]
     Indication: ATTENTION DEFICIT/HYPERACTIVITY DISORDER
     Dosage: 40 MG ONCE A DAY ORAL
     Route: 048
     Dates: start: 20041115, end: 20041116

REACTIONS (3)
  - ANGIONEUROTIC OEDEMA [None]
  - CYANOSIS [None]
  - HYPERSENSITIVITY [None]
